FAERS Safety Report 15215828 (Version 4)
Quarter: 2019Q3

REPORT INFORMATION
  Report Type: Spontaneous
  Country: JP (occurrence: JP)
  Receive Date: 20180730
  Receipt Date: 20190722
  Transmission Date: 20191004
  Serious: Yes (Death, Hospitalization)
  Sender: FDA-Public Use
  Company Number: JP-EISAI MEDICAL RESEARCH-EC-2018-043306

PATIENT
  Age: 68 Year
  Sex: Male
  Weight: 83 kg

DRUGS (2)
  1. LENVIMA [Suspect]
     Active Substance: LENVATINIB
     Route: 048
     Dates: start: 2018, end: 2018
  2. LENVIMA [Suspect]
     Active Substance: LENVATINIB
     Indication: HEPATOCELLULAR CARCINOMA
     Route: 048
     Dates: start: 20180605, end: 20180625

REACTIONS (4)
  - Decreased appetite [Unknown]
  - Malaise [Unknown]
  - Hepatic failure [Fatal]
  - Thalamus haemorrhage [Fatal]

NARRATIVE: CASE EVENT DATE: 2018
